FAERS Safety Report 9971135 (Version 1)
Quarter: 2014Q1

REPORT INFORMATION
  Report Type: Report from Study
  Country: US (occurrence: US)
  Receive Date: 20140306
  Receipt Date: 20140306
  Transmission Date: 20141002
  Serious: No
  Sender: FDA-Public Use
  Company Number: US-ABBVIE-13P-163-1150456-00

PATIENT
  Age: 34 Year
  Sex: Female

DRUGS (9)
  1. HUMIRA [Suspect]
     Indication: PSORIASIS
     Dates: start: 2012
  2. HUMIRA [Suspect]
     Dates: start: 201308, end: 201308
  3. HUMIRA [Suspect]
     Dates: start: 201308
  4. PERCOCET [Concomitant]
     Indication: PSORIATIC ARTHROPATHY
     Dosage: 4 IN AM AND 4 IN PM
  5. PROMETHAZINE [Concomitant]
     Indication: NAUSEA
     Dosage: 1 TAB WITH PERCOCET DOSAGES
  6. TRIAZOLAM [Concomitant]
     Indication: ANXIETY
     Dosage: AT BEDTIME
  7. TRIAZOLAM [Concomitant]
     Indication: INSOMNIA
  8. CITALOPRAM [Concomitant]
     Indication: DEPRESSION
  9. ORTHO EVRA [Concomitant]
     Indication: CONTRACEPTION

REACTIONS (11)
  - Malaise [Not Recovered/Not Resolved]
  - Headache [Not Recovered/Not Resolved]
  - Nasal congestion [Not Recovered/Not Resolved]
  - Cough [Not Recovered/Not Resolved]
  - Pyrexia [Not Recovered/Not Resolved]
  - Nausea [Not Recovered/Not Resolved]
  - Caregiver [Unknown]
  - Psoriasis [Recovering/Resolving]
  - Pain [Unknown]
  - Hypoaesthesia [Not Recovered/Not Resolved]
  - Vitamin B complex deficiency [Not Recovered/Not Resolved]
